FAERS Safety Report 6264567-3 (Version None)
Quarter: 2009Q3

REPORT INFORMATION
  Report Type: 
  Country: None (occurrence: None)
  Receive Date: 20090708
  Receipt Date: 20090630
  Transmission Date: 20100115
  Serious: Yes (Life-Threatening, Hospitalization)
  Sender: FDA-Public Use
  Company Number: 2009EU002287

PATIENT
  Age: 51 Year
  Sex: Female
  Weight: 64 kg

DRUGS (12)
  1. VESICARE [Suspect]
     Indication: HYPERTONIC BLADDER
     Dosage: 5 MG, D, ORAL
     Route: 048
     Dates: start: 20060728, end: 20090331
  2. AMITRIPTYLINE HYDROCHLORIDE [Concomitant]
  3. FLUOXETINE HCL [Concomitant]
  4. ADCAL-D3 (COLECALCIFEROL) [Concomitant]
  5. PREMARIN [Concomitant]
  6. TRAMADOL HCL [Concomitant]
  7. EPIPEN [Concomitant]
  8. DUROGESIC D-TRANS (FENTANYL) [Concomitant]
  9. LACTULOSE [Concomitant]
  10. DIAZEPAM [Concomitant]
  11. LANSOPRAZOLE [Concomitant]
  12. PARACETAMOL [Concomitant]

REACTIONS (3)
  - ABDOMINAL PAIN [None]
  - HAEMATEMESIS [None]
  - OESOPHAGITIS [None]
